FAERS Safety Report 6674217-X (Version None)
Quarter: 2010Q2

REPORT INFORMATION
  Report Type: 
  Country: None (occurrence: None)
  Receive Date: 20100407
  Receipt Date: 20100325
  Transmission Date: 20101027
  Serious: Yes (Hospitalization)
  Sender: FDA-Public Use
  Company Number: 1000012330

PATIENT
  Age: 17 Year
  Sex: Male

DRUGS (7)
  1. CARBAMAZEPINE [Suspect]
     Indication: EPILEPSY
     Dates: start: 20070501
  2. ZONISAMIDE [Suspect]
     Indication: EPILEPSY
     Dates: start: 20070501
  3. AMOXICILLIN [Suspect]
     Dosage: (ONCE)
  4. PL POWDER [Concomitant]
  5. BEPOTASTINE BESILATE [Concomitant]
  6. CEFDITOREN PIVOXIL [Concomitant]
  7. CARBOCISTEINE [Concomitant]

REACTIONS (9)
  - ALANINE AMINOTRANSFERASE INCREASED [None]
  - ASPARTATE AMINOTRANSFERASE INCREASED [None]
  - BLOOD LACTATE DEHYDROGENASE INCREASED [None]
  - DRUG RASH WITH EOSINOPHILIA AND SYSTEMIC SYMPTOMS [None]
  - HEPATIC FUNCTION ABNORMAL [None]
  - HUMAN HERPES VIRUS 6 SEROLOGY POSITIVE [None]
  - LYMPHOCYTE STIMULATION TEST POSITIVE [None]
  - MYCOPLASMA TEST POSITIVE [None]
  - TOXIC EPIDERMAL NECROLYSIS [None]
